FAERS Safety Report 17299919 (Version 1)
Quarter: 2020Q1

REPORT INFORMATION
  Report Type: Spontaneous
  Country: US (occurrence: US)
  Receive Date: 20200122
  Receipt Date: 20200122
  Transmission Date: 20200409
  Serious: No
  Sender: FDA-Public Use
  Company Number: US-ALLERGAN-1933497US

PATIENT
  Age: 85 Year
  Sex: Female

DRUGS (2)
  1. UNSPECIFIED EYE DROPS MADE FROM HER BLOOD [Concomitant]
     Dosage: UNK
     Route: 047
  2. RESTASIS [Suspect]
     Active Substance: CYCLOSPORINE
     Indication: DRY EYE
     Dosage: 2 GTT, QD
     Route: 047
     Dates: start: 2019, end: 20190819

REACTIONS (2)
  - Off label use [Unknown]
  - Dry eye [Unknown]

NARRATIVE: CASE EVENT DATE: 2019
